FAERS Safety Report 9182435 (Version 6)
Quarter: 2013Q3

REPORT INFORMATION
  Report Type: Spontaneous
  Country: DK (occurrence: DK)
  Receive Date: 20130322
  Receipt Date: 20130903
  Transmission Date: 20140515
  Serious: Yes (Death)
  Sender: FDA-Public Use
  Company Number: DK-NOVOPROD-373674

PATIENT
  Age: 68 Year
  Sex: Male

DRUGS (5)
  1. NOVORAPID FLEXPEN [Suspect]
     Indication: DIABETES MELLITUS
     Dosage: UNK
     Route: 065
  2. NOVORAPID FLEXPEN [Suspect]
     Dosage: UNK
     Route: 065
  3. NOVORAPID FLEXPEN [Suspect]
     Dosage: UNK
     Route: 065
  4. NOVORAPID FLEXPEN [Suspect]
     Dosage: UNK
     Route: 065
  5. LANTUS SOLO STAR [Suspect]
     Indication: DIABETES MELLITUS
     Dosage: UNK
     Route: 065
     Dates: end: 20130106

REACTIONS (3)
  - Device malfunction [Fatal]
  - Wrong drug administered [Fatal]
  - Overdose [Fatal]
